FAERS Safety Report 5932586-X (Version None)
Quarter: 2008Q4

REPORT INFORMATION
  Report Type: 
  Country: None (occurrence: None)
  Receive Date: 20081009
  Receipt Date: 20071027
  Transmission Date: 20090506
  Serious: Yes (Other)
  Sender: FDA-Public Use
  Company Number: PHEH2007US14193

PATIENT
  Sex: Female

DRUGS (2)
  1. ZOMETA [Suspect]
     Dates: start: 20060101
  2. ZOMETA [Suspect]
     Dates: start: 20070101

REACTIONS (4)
  - BREAST CANCER METASTATIC [None]
  - INFECTION [None]
  - OSTEONECROSIS [None]
  - PAIN [None]
